FAERS Safety Report 9735703 (Version 1)
Quarter: 2013Q4

REPORT INFORMATION
  Report Type: Spontaneous
  Country: US (occurrence: None)
  Receive Date: 20131205
  Receipt Date: 20131205
  Transmission Date: 20140711
  Serious: Yes (Death)
  Sender: FDA-Public Use
  Company Number: None

PATIENT
  Sex: Female

DRUGS (1)
  1. XELODA 500 MG GENENTECH [Suspect]
     Indication: BREAST CANCER
     Route: 048
     Dates: start: 20131120, end: 20131204

REACTIONS (3)
  - Death [None]
  - Disease progression [None]
  - Unevaluable event [None]
